FAERS Safety Report 11843511 (Version 1)
Quarter: 2015Q4

REPORT INFORMATION
  Report Type: Spontaneous
  Country: PT (occurrence: PT)
  Receive Date: 20151217
  Receipt Date: 20151217
  Transmission Date: 20160305
  Serious: Yes (Hospitalization)
  Sender: FDA-Public Use
  Company Number: PT-AXELLIA-000880

PATIENT
  Age: 7 Year
  Sex: Male

DRUGS (4)
  1. CEFTRIAXONE. [Suspect]
     Active Substance: CEFTRIAXONE
     Indication: MASTOIDITIS
  2. VANCOMYCIN [Suspect]
     Active Substance: VANCOMYCIN
     Indication: MASTOIDITIS
  3. TEICOPLANIN [Concomitant]
     Active Substance: TEICOPLANIN
     Indication: MASTOIDITIS
  4. CLINDAMYCIN [Suspect]
     Active Substance: CLINDAMYCIN\CLINDAMYCIN PHOSPHATE
     Indication: MASTOIDITIS

REACTIONS (3)
  - Toxic skin eruption [Recovering/Resolving]
  - Hepatomegaly [Recovering/Resolving]
  - Hepatocellular injury [Recovering/Resolving]
